FAERS Safety Report 12598057 (Version 1)
Quarter: 2016Q3

REPORT INFORMATION
  Report Type: Spontaneous
  Country: US (occurrence: US)
  Receive Date: 20160726
  Receipt Date: 20160726
  Transmission Date: 20161109
  Serious: No
  Sender: FDA-Public Use
  Company Number: US-GILEAD-2016-0225122

PATIENT
  Sex: Female

DRUGS (1)
  1. HARVONI [Suspect]
     Active Substance: LEDIPASVIR\SOFOSBUVIR
     Indication: PRODUCT USED FOR UNKNOWN INDICATION
     Dosage: UNK
     Route: 065
     Dates: start: 20151108, end: 20160202

REACTIONS (4)
  - Feeling abnormal [Unknown]
  - Conjunctivitis [Recovered/Resolved]
  - Dry eye [Unknown]
  - Burning mouth syndrome [Not Recovered/Not Resolved]
